FAERS Safety Report 4813712-2 (Version None)
Quarter: 2005Q4

REPORT INFORMATION
  Report Type: 
  Country: None (occurrence: None)
  Receive Date: 20051028
  Receipt Date: 20050714
  Transmission Date: 20060501
  Serious: No
  Sender: FDA-Public Use
  Company Number: US-GLAXOSMITHKLINE-A0566345A

PATIENT
  Age: 51 Year
  Sex: Female

DRUGS (2)
  1. IMITREX [Suspect]
     Indication: MIGRAINE
     Route: 045
  2. DARVOCET [Suspect]
     Indication: MIGRAINE
     Route: 065

REACTIONS (2)
  - DRUG INEFFECTIVE [None]
  - HEADACHE [None]
